FAERS Safety Report 8282686 (Version 4)
Quarter: 2013Q3

REPORT INFORMATION
  Report Type: Report from Study
  Country: JP (occurrence: JP)
  Receive Date: 20111209
  Receipt Date: 20130814
  Transmission Date: 20140515
  Serious: Yes (Hospitalization)
  Sender: FDA-Public Use
  Company Number: JP-ROCHE-1009763

PATIENT
  Age: 5 Year
  Sex: Female
  Weight: 15 kg

DRUGS (56)
  1. TOCILIZUMAB [Suspect]
     Indication: JUVENILE IDIOPATHIC ARTHRITIS
     Route: 041
     Dates: start: 20100121, end: 20100415
  2. TOCILIZUMAB [Suspect]
     Indication: JUVENILE IDIOPATHIC ARTHRITIS
     Route: 041
     Dates: start: 20100511, end: 20100610
  3. TOCILIZUMAB [Suspect]
     Indication: JUVENILE IDIOPATHIC ARTHRITIS
     Route: 041
     Dates: start: 20100708, end: 20100805
  4. TOCILIZUMAB [Suspect]
     Indication: JUVENILE IDIOPATHIC ARTHRITIS
     Route: 041
     Dates: start: 20100902, end: 20110218
  5. TOCILIZUMAB [Suspect]
     Indication: JUVENILE IDIOPATHIC ARTHRITIS
     Route: 041
     Dates: start: 20110310, end: 20110916
  6. TOCILIZUMAB [Suspect]
     Indication: JUVENILE IDIOPATHIC ARTHRITIS
     Route: 041
     Dates: start: 20111007, end: 20111007
  7. TOCILIZUMAB [Suspect]
     Indication: JUVENILE IDIOPATHIC ARTHRITIS
     Route: 041
     Dates: start: 20111104, end: 20111125
  8. TOCILIZUMAB [Suspect]
     Indication: JUVENILE IDIOPATHIC ARTHRITIS
     Route: 041
     Dates: start: 20111209, end: 20111209
  9. TOCILIZUMAB [Suspect]
     Indication: JUVENILE IDIOPATHIC ARTHRITIS
     Route: 041
     Dates: start: 20111216, end: 20120106
  10. TOCILIZUMAB [Suspect]
     Indication: JUVENILE IDIOPATHIC ARTHRITIS
     Route: 041
     Dates: start: 20120120, end: 20120427
  11. TOCILIZUMAB [Suspect]
     Indication: JUVENILE IDIOPATHIC ARTHRITIS
     Route: 041
     Dates: end: 20120720
  12. TOCILIZUMAB [Suspect]
     Indication: JUVENILE IDIOPATHIC ARTHRITIS
     Route: 041
     Dates: start: 20120727, end: 20120803
  13. TOCILIZUMAB [Suspect]
     Indication: JUVENILE IDIOPATHIC ARTHRITIS
     Route: 041
     Dates: start: 20120810, end: 20121019
  14. BRUFEN [Concomitant]
     Indication: JUVENILE IDIOPATHIC ARTHRITIS
     Route: 048
     Dates: start: 20090428, end: 201002
  15. BRUFEN [Concomitant]
     Indication: JUVENILE IDIOPATHIC ARTHRITIS
     Route: 048
     Dates: start: 20120427, end: 20120530
  16. BRUFEN [Concomitant]
     Indication: JUVENILE IDIOPATHIC ARTHRITIS
     Route: 048
     Dates: start: 20120531, end: 20120719
  17. BRUFEN [Concomitant]
     Indication: JUVENILE IDIOPATHIC ARTHRITIS
     Route: 048
     Dates: start: 20120720
  18. PREDNISOLONE [Concomitant]
     Indication: JUVENILE IDIOPATHIC ARTHRITIS
     Route: 048
     Dates: start: 20090524, end: 20090710
  19. PREDNISOLONE [Concomitant]
     Indication: JUVENILE IDIOPATHIC ARTHRITIS
     Route: 048
     Dates: start: 20090711, end: 20090722
  20. PREDNISOLONE [Concomitant]
     Indication: JUVENILE IDIOPATHIC ARTHRITIS
     Route: 048
     Dates: start: 20090723, end: 20090916
  21. PREDNISOLONE [Concomitant]
     Indication: JUVENILE IDIOPATHIC ARTHRITIS
     Route: 048
     Dates: start: 20090917, end: 20091027
  22. PREDNISOLONE [Concomitant]
     Indication: JUVENILE IDIOPATHIC ARTHRITIS
     Route: 048
     Dates: start: 20091030, end: 20091112
  23. PREDNISOLONE [Concomitant]
     Indication: JUVENILE IDIOPATHIC ARTHRITIS
     Route: 048
     Dates: start: 20091113, end: 2010
  24. PREDNISOLONE [Concomitant]
     Indication: JUVENILE IDIOPATHIC ARTHRITIS
     Route: 048
     Dates: start: 201011, end: 20111028
  25. PREDNISOLONE [Concomitant]
     Indication: JUVENILE IDIOPATHIC ARTHRITIS
     Route: 048
     Dates: start: 20111111, end: 20111116
  26. PREDNISOLONE [Concomitant]
     Indication: JUVENILE IDIOPATHIC ARTHRITIS
     Route: 048
     Dates: start: 20111117, end: 20111221
  27. PREDNISOLONE [Concomitant]
     Indication: JUVENILE IDIOPATHIC ARTHRITIS
     Route: 048
     Dates: start: 20111222, end: 20120119
  28. PREDNISOLONE [Concomitant]
     Indication: JUVENILE IDIOPATHIC ARTHRITIS
     Route: 048
     Dates: start: 20120120, end: 20120229
  29. PREDNISOLONE [Concomitant]
     Indication: JUVENILE IDIOPATHIC ARTHRITIS
     Route: 048
     Dates: start: 20120301, end: 20120315
  30. PREDNISOLONE [Concomitant]
     Indication: JUVENILE IDIOPATHIC ARTHRITIS
     Route: 048
     Dates: start: 20120316, end: 20120329
  31. PREDNISOLONE [Concomitant]
     Indication: JUVENILE IDIOPATHIC ARTHRITIS
     Route: 048
     Dates: start: 20120330, end: 20120410
  32. PREDNISOLONE [Concomitant]
     Indication: JUVENILE IDIOPATHIC ARTHRITIS
     Route: 048
     Dates: start: 20120411, end: 20120426
  33. PREDNISOLONE [Concomitant]
     Indication: JUVENILE IDIOPATHIC ARTHRITIS
     Route: 048
     Dates: start: 20120427, end: 20120506
  34. PREDNISOLONE [Concomitant]
     Indication: JUVENILE IDIOPATHIC ARTHRITIS
     Route: 048
     Dates: start: 20120507, end: 20120511
  35. PREDNISOLONE [Concomitant]
     Indication: JUVENILE IDIOPATHIC ARTHRITIS
     Route: 048
     Dates: start: 20120512, end: 20120521
  36. PREDNISOLONE [Concomitant]
     Indication: JUVENILE IDIOPATHIC ARTHRITIS
     Route: 048
     Dates: start: 20120522, end: 20120530
  37. PREDNISOLONE [Concomitant]
     Indication: JUVENILE IDIOPATHIC ARTHRITIS
     Route: 048
     Dates: start: 20120531, end: 20120621
  38. PREDNISOLONE [Concomitant]
     Indication: JUVENILE IDIOPATHIC ARTHRITIS
     Route: 048
     Dates: start: 20120622, end: 20120718
  39. PREDNISOLONE [Concomitant]
     Indication: JUVENILE IDIOPATHIC ARTHRITIS
     Route: 048
     Dates: start: 20120623, end: 20120719
  40. PREDNISOLONE [Concomitant]
     Indication: JUVENILE IDIOPATHIC ARTHRITIS
     Route: 048
     Dates: start: 20120720, end: 20120816
  41. PREDNISOLONE [Concomitant]
     Indication: JUVENILE IDIOPATHIC ARTHRITIS
     Route: 048
     Dates: start: 20120817, end: 20120831
  42. PREDNISOLONE [Concomitant]
     Indication: JUVENILE IDIOPATHIC ARTHRITIS
     Route: 048
     Dates: start: 20120901, end: 20120914
  43. PREDNISOLONE [Concomitant]
     Indication: JUVENILE IDIOPATHIC ARTHRITIS
     Route: 048
     Dates: start: 20120915, end: 20120928
  44. PREDNISOLONE [Concomitant]
     Indication: JUVENILE IDIOPATHIC ARTHRITIS
     Route: 048
     Dates: start: 20120929, end: 20121012
  45. PREDNISOLONE [Concomitant]
     Indication: JUVENILE IDIOPATHIC ARTHRITIS
     Route: 048
     Dates: start: 20121013
  46. METHOTREXATE [Concomitant]
     Indication: JUVENILE IDIOPATHIC ARTHRITIS
     Route: 048
     Dates: start: 200912, end: 20120802
  47. METHOTREXATE [Concomitant]
     Indication: JUVENILE IDIOPATHIC ARTHRITIS
     Route: 048
     Dates: start: 20120803, end: 20120809
  48. METHOTREXATE [Concomitant]
     Indication: JUVENILE IDIOPATHIC ARTHRITIS
     Route: 048
     Dates: start: 20120810, end: 20120816
  49. METHOTREXATE [Concomitant]
     Indication: JUVENILE IDIOPATHIC ARTHRITIS
     Route: 048
     Dates: start: 20120817
  50. FOLIAMIN [Concomitant]
     Indication: JUVENILE IDIOPATHIC ARTHRITIS
     Route: 048
     Dates: start: 200912
  51. ONON [Concomitant]
     Indication: ASTHMA
     Route: 048
     Dates: start: 20110106, end: 20120704
  52. ALFAROL [Concomitant]
     Indication: JUVENILE IDIOPATHIC ARTHRITIS
     Route: 048
     Dates: start: 20111222
  53. FAMOTIDINE D [Concomitant]
     Indication: PROPHYLAXIS AGAINST GASTROINTESTINAL ULCER
     Route: 048
  54. MEROPEN [Concomitant]
     Indication: SEPSIS
     Route: 041
     Dates: start: 20120502, end: 20120511
  55. HEPARIN NA [Concomitant]
     Indication: JUVENILE IDIOPATHIC ARTHRITIS
     Route: 041
     Dates: start: 20120504, end: 20120507
  56. SOL-MELCORT [Concomitant]
     Indication: JUVENILE IDIOPATHIC ARTHRITIS
     Route: 041
     Dates: start: 20120504, end: 20120506

REACTIONS (3)
  - Juvenile idiopathic arthritis [Recovering/Resolving]
  - Juvenile idiopathic arthritis [Recovering/Resolving]
  - Arthritis [Recovering/Resolving]
